FAERS Safety Report 6804334-2 (Version None)
Quarter: 2010Q2

REPORT INFORMATION
  Report Type: 
  Country: None (occurrence: None)
  Receive Date: 20100628
  Receipt Date: 20070301
  Transmission Date: 20101027
  Serious: Yes (Other)
  Sender: FDA-Public Use
  Company Number: US-PFIZER INC-2007016794

PATIENT
  Sex: Male
  Weight: 72.6 kg

DRUGS (4)
  1. SUTENT [Suspect]
     Indication: RENAL CELL CARCINOMA
     Dates: start: 20070101
  2. COZAAR [Concomitant]
  3. PROTONIX [Concomitant]
  4. BENTYL [Concomitant]

REACTIONS (1)
  - PLATELET COUNT DECREASED [None]
